FAERS Safety Report 23823236 (Version 1)
Quarter: 2024Q2

REPORT INFORMATION
  Report Type: Spontaneous
  Country: NL (occurrence: NL)
  Receive Date: 20240507
  Receipt Date: 20240507
  Transmission Date: 20240716
  Serious: Yes (Hospitalization)
  Sender: FDA-Public Use
  Company Number: NL-NOVOPROD-1176416

PATIENT
  Sex: Female

DRUGS (2)
  1. VICTOZA [Suspect]
     Active Substance: LIRAGLUTIDE
     Indication: Product used for unknown indication
     Dosage: UNK
  2. GLICLAZIDE [Concomitant]
     Active Substance: GLICLAZIDE
     Indication: Product used for unknown indication
     Dosage: UNK

REACTIONS (2)
  - Surgery [Unknown]
  - Adverse drug reaction [Unknown]
